FAERS Safety Report 8367644-6 (Version None)
Quarter: 2012Q1

REPORT INFORMATION
  Report Type: 
  Country: None (occurrence: None)
  Receive Date: 20120323
  Receipt Date: 20111222
  Transmission Date: 20120608
  Serious: Yes (Disabling)
  Sender: FDA-Public Use
  Company Number: 163-21880-111112090

PATIENT
  Age: 66 Year
  Sex: Male

DRUGS (4)
  1. REVLIMID [Suspect]
     Indication: MULTIPLE MYELOMA
     Dosage: 25 MG, 1 IN 1 D, PO ; 5 MG, DAILY FOR 21 DAYS, PO
     Route: 048
     Dates: start: 20101201
  2. REVLIMID [Suspect]
     Indication: MULTIPLE MYELOMA
     Dosage: 25 MG, 1 IN 1 D, PO ; 5 MG, DAILY FOR 21 DAYS, PO
     Route: 048
     Dates: start: 20110922
  3. VELCADE [Suspect]
     Indication: PRODUCT USED FOR UNKNOWN INDICATION
     Dates: end: 20111101
  4. CISPLATIN [Concomitant]

REACTIONS (3)
  - PAIN IN EXTREMITY [None]
  - NEUROPATHY PERIPHERAL [None]
  - PERIPHERAL COLDNESS [None]
